FAERS Safety Report 5670552-2 (Version None)
Quarter: 2008Q1

REPORT INFORMATION
  Report Type: 
  Country: None (occurrence: None)
  Receive Date: 20080318
  Receipt Date: 20080307
  Transmission Date: 20080703
  Serious: Yes (Life-Threatening, Hospitalization, Other)
  Sender: FDA-Public Use
  Company Number: US-BAYER-200812550NA

PATIENT
  Age: 69 Year
  Sex: Male

DRUGS (6)
  1. AVELOX [Suspect]
     Indication: SINUSITIS
     Dosage: TOTAL DAILY DOSE: 400 MG  UNIT DOSE: 400 MG
     Route: 048
     Dates: start: 20080126
  2. LIPITOR [Concomitant]
     Dosage: TOTAL DAILY DOSE: 10 MG
  3. FOLIC ACID [Concomitant]
     Dosage: TOTAL DAILY DOSE: 1 MG
  4. LOTREL [Concomitant]
  5. TRICOR [Concomitant]
     Dosage: TOTAL DAILY DOSE: 48 MG
  6. TRIAMTERENE/HCT [Concomitant]

REACTIONS (2)
  - ANGIOEDEMA [None]
  - SWOLLEN TONGUE [None]
